FAERS Safety Report 23807913 (Version 1)
Quarter: 2024Q2

REPORT INFORMATION
  Report Type: Spontaneous
  Country: CN (occurrence: CN)
  Receive Date: 20240502
  Receipt Date: 20240502
  Transmission Date: 20240716
  Serious: Yes (Death, Life-Threatening, Hospitalization, Other)
  Sender: FDA-Public Use
  Company Number: CN-Axellia-005156

PATIENT
  Age: 76 Year
  Sex: Female

DRUGS (4)
  1. TIGECYCLINE [Suspect]
     Active Substance: TIGECYCLINE
     Indication: Pneumonia
     Dosage: 100 MG Q12H
  2. CEFOPERAZONE SODIUM\SULBACTAM [Concomitant]
     Active Substance: CEFOPERAZONE SODIUM\SULBACTAM
     Indication: Pneumonia
     Dosage: (1 : 1) (3 G Q8H) ON THE 10TH DAY
  3. CLOPIDOGREL [Concomitant]
     Active Substance: CLOPIDOGREL BISULFATE
     Indication: Product used for unknown indication
  4. ESOMEPRAZOLE [Concomitant]
     Active Substance: ESOMEPRAZOLE
     Indication: Product used for unknown indication

REACTIONS (9)
  - Acute hepatic failure [Fatal]
  - Lower gastrointestinal haemorrhage [Fatal]
  - Shock haemorrhagic [Fatal]
  - Pneumonia [Fatal]
  - Metabolic acidosis [Fatal]
  - Hyperkalaemia [Fatal]
  - Drug-induced liver injury [Fatal]
  - Cardiac arrest [Fatal]
  - Circulatory collapse [Fatal]
